FAERS Safety Report 25469043 (Version 6)
Quarter: 2025Q4

REPORT INFORMATION
  Report Type: Other
  Country: US (occurrence: US)
  Receive Date: 20250623
  Receipt Date: 20251003
  Transmission Date: 20260118
  Serious: No
  Sender: TRAVERE THERAPEUTICS
  Company Number: US-TRAVERE-2025TVT00744

PATIENT
  Age: 44 Year
  Sex: Female

DRUGS (2)
  1. FILSPARI [Suspect]
     Active Substance: SPARSENTAN
     Indication: IgA nephropathy
     Route: 048
     Dates: start: 202504
  2. FILSPARI [Suspect]
     Active Substance: SPARSENTAN
     Dosage: LOT NUMBER: 1976071, EXPIRY DATE: 30-MAY-2026?LOT NUMBER: 1979025, EXPIRY DATE: 30-AUG-2026
     Route: 048
     Dates: start: 20250512, end: 202506

REACTIONS (3)
  - Fatigue [Unknown]
  - Dyspnoea [None]
  - Presyncope [Unknown]
